FAERS Safety Report 12260868 (Version 1)
Quarter: 2016Q2

REPORT INFORMATION
  Report Type: Spontaneous
  Country: US (occurrence: None)
  Receive Date: 20160412
  Receipt Date: 20160412
  Transmission Date: 20160815
  Serious: Yes (Death)
  Sender: FDA-Public Use
  Company Number: None

PATIENT
  Age: 47 Year
  Sex: Male
  Weight: 77.6 kg

DRUGS (2)
  1. MEROPENEM, 500 MG [Suspect]
     Active Substance: MEROPENEM
     Indication: SEPSIS
     Route: 042
     Dates: start: 20160122, end: 20160129
  2. VALPROIC ACID, SYRUP [Suspect]
     Active Substance: VALPROIC ACID
     Indication: SEIZURE
     Route: 048
     Dates: start: 20160120, end: 20160128

REACTIONS (14)
  - Hypoglycaemia [None]
  - Pneumonia aspiration [None]
  - Agitation [None]
  - Weight decreased [None]
  - Slow response to stimuli [None]
  - Contraindication to medical treatment [None]
  - Seizure [None]
  - Drug interaction [None]
  - Sepsis [None]
  - Fall [None]
  - Diet refusal [None]
  - General physical health deterioration [None]
  - Anxiety [None]
  - Small intestinal obstruction [None]

NARRATIVE: CASE EVENT DATE: 20160128
